FAERS Safety Report 9448059 (Version 1)
Quarter: 2013Q3

REPORT INFORMATION
  Report Type: Spontaneous
  Country: US (occurrence: US)
  Receive Date: 20130808
  Receipt Date: 20130808
  Transmission Date: 20140515
  Serious: Yes (Other)
  Sender: FDA-Public Use
  Company Number: US-BAYER-2013-095951

PATIENT
  Sex: Female
  Weight: 53 kg

DRUGS (9)
  1. BETASERON [Suspect]
     Dosage: 1 ML, QOD
     Route: 058
     Dates: end: 2008
  2. ATENOLOL [Concomitant]
     Dosage: 100 MG, UNK
  3. FLUOXETINE [Concomitant]
     Dosage: 10 MG, UNK
  4. AMITRIPTYLIN [Concomitant]
     Dosage: 10 MG, UNK
  5. SIMVASTATIN [Concomitant]
     Dosage: 10 MG, UNK
  6. STOOL SOFTENER [Concomitant]
     Dosage: 240 MG, UNK
  7. TYLENOL [PARACETAMOL] [Concomitant]
     Dosage: 500 MG, UNK
  8. ADVIL [Concomitant]
     Dosage: 200 MG, UNK
  9. METHYLPHENIDATE [Concomitant]
     Dosage: 10 MG, UNK

REACTIONS (2)
  - Cystitis bacterial [Unknown]
  - Headache [Unknown]
